FAERS Safety Report 7581118-1 (Version None)
Quarter: 2011Q2

REPORT INFORMATION
  Report Type: 
  Country: None (occurrence: None)
  Receive Date: 20110527
  Receipt Date: 20110308
  Transmission Date: 20111010
  Serious: Yes (Other)
  Sender: FDA-Public Use
  Company Number: US201103003309

PATIENT
  Age: 69 Year
  Sex: Female

DRUGS (2)
  1. BYETTA [Suspect]
     Indication: TYPE 2 DIABETES MELLITUS
     Dosage: 5 UG, SUBCUTANEOUS
     Route: 058
     Dates: start: 20110225, end: 20110307
  2. METFORMIN ER (METFORMIN HYDROCHLORIDE) [Concomitant]

REACTIONS (3)
  - PRURITUS [None]
  - ANGIOEDEMA [None]
  - URTICARIA [None]
